FAERS Safety Report 10753574 (Version 1)
Quarter: 2015Q1

REPORT INFORMATION
  Report Type: Spontaneous
  Country: US (occurrence: None)
  Receive Date: 20150129
  Receipt Date: 20150129
  Transmission Date: 20150721
  Serious: Yes (Other)
  Sender: FDA-Public Use
  Company Number: None

PATIENT
  Age: 5 Year
  Sex: Female
  Weight: 18.14 kg

DRUGS (1)
  1. MIRALAX [Suspect]
     Active Substance: POLYETHYLENE GLYCOL 3350
     Indication: CONSTIPATION
     Dosage: 1 TSP+ DAILY  AS NEEDED TAKBEN BY MOUTH
     Route: 048

REACTIONS (5)
  - Abnormal behaviour [None]
  - Developmental delay [None]
  - Fear [None]
  - Anxiety [None]
  - Paranoia [None]

NARRATIVE: CASE EVENT DATE: 20150112
